FAERS Safety Report 9347500 (Version 2)
Quarter: 2013Q3

REPORT INFORMATION
  Report Type: Report from Study
  Country: GB (occurrence: GB)
  Receive Date: 20130614
  Receipt Date: 20130824
  Transmission Date: 20140515
  Serious: Yes (Death, Other)
  Sender: FDA-Public Use
  Company Number: GB-009507513-1306GBR004591

PATIENT
  Sex: 0

DRUGS (2)
  1. TEMOZOLOMIDE [Suspect]
     Indication: METASTATIC MALIGNANT MELANOMA
     Dosage: 200 MG/M2, ON DAYS 1-5 EVERY 28 DAYS
     Route: 048
  2. RUCAPARIB [Suspect]
     Indication: METASTATIC MALIGNANT MELANOMA
     Dosage: 12 MG/M2, UNK
     Route: 042

REACTIONS (1)
  - Hepatorenal failure [Fatal]
